FAERS Safety Report 24721053 (Version 1)
Quarter: 2024Q4

REPORT INFORMATION
  Report Type: Spontaneous
  Country: IT (occurrence: IT)
  Receive Date: 20241211
  Receipt Date: 20241211
  Transmission Date: 20250115
  Serious: Yes (Other)
  Sender: ROCHE
  Company Number: IT-ROCHE-10000151876

PATIENT
  Sex: Female

DRUGS (3)
  1. ALECTINIB [Suspect]
     Active Substance: ALECTINIB
     Indication: Metastatic neoplasm
     Route: 065
  2. GEMCITABINE [Concomitant]
     Active Substance: GEMCITABINE
  3. CISPLATIN [Concomitant]
     Active Substance: CISPLATIN

REACTIONS (1)
  - Bladder neoplasm [Unknown]
